FAERS Safety Report 6866320-6 (Version None)
Quarter: 2010Q3

REPORT INFORMATION
  Report Type: 
  Country: None (occurrence: None)
  Receive Date: 20100722
  Receipt Date: 20100719
  Transmission Date: 20110219
  Serious: Yes (Other)
  Sender: FDA-Public Use
  Company Number: DE-BRISTOL-MYERS SQUIBB COMPANY-15144264

PATIENT
  Age: 76 Year
  Sex: Male
  Weight: 95 kg

DRUGS (11)
  1. ONGLYZA [Suspect]
     Indication: DIABETES MELLITUS
     Route: 048
     Dates: start: 20100315, end: 20100514
  2. ACTRAPHANE [Concomitant]
     Indication: DIABETES MELLITUS
     Dosage: 1DF:30(UNIT NOT SPECIFIED)
     Route: 058
  3. PENTAERYTHRITOL TETRANITRATE [Concomitant]
     Indication: MYOCARDIAL ISCHAEMIA
     Dosage: 1DF:80(UNIT NOT SPECIFIED)
  4. SIMVASTATIN [Concomitant]
     Indication: LIPID METABOLISM DISORDER
     Dosage: 1DF:40(UNIT NOT SPECIFIED),1/2DAY
  5. AQUAPHOR [Concomitant]
     Indication: CARDIAC DISORDER
     Dosage: 1DF:40(UNIT NOT SPECIFIED),1/4 DAY
  6. AQUAPHOR [Concomitant]
     Indication: OEDEMA
     Dosage: 1DF:40(UNIT NOT SPECIFIED),1/4 DAY
  7. FUROBETA [Concomitant]
     Indication: CARDIAC DISORDER
  8. FUROBETA [Concomitant]
     Indication: OEDEMA
  9. AMLODIPINE [Concomitant]
     Indication: HYPERTENSION
     Dosage: 1DF:10(UNIT NOT SPECIFIED)
  10. RAMIPRIL [Concomitant]
     Indication: HYPERTENSION
     Dosage: 1DF:5(UNIT NOT SPECIFIED)
  11. FALITHROM [Concomitant]
     Indication: ATRIAL FIBRILLATION

REACTIONS (1)
  - VISUAL IMPAIRMENT [None]
